FAERS Safety Report 7334394-4 (Version None)
Quarter: 2011Q1

REPORT INFORMATION
  Report Type: 
  Country: None (occurrence: None)
  Receive Date: 20110307
  Receipt Date: 20110223
  Transmission Date: 20110831
  Serious: Yes (Other)
  Sender: FDA-Public Use
  Company Number: CA-CELGENEUS-028-21880-11022754

PATIENT
  Sex: Female
  Weight: 91.5 kg

DRUGS (4)
  1. REVLIMID [Suspect]
     Indication: MULTIPLE MYELOMA
     Dosage: 25 MILLIGRAM
     Route: 048
     Dates: start: 20100110
  2. AVALIDE [Concomitant]
     Dosage: 300/125MG
     Route: 048
  3. EPREX [Concomitant]
     Dosage: 40000 UNITS
     Route: 058
  4. DEXAMETHASONE [Concomitant]
     Dosage: 12 MILLIGRAM
     Route: 048

REACTIONS (1)
  - CONJUNCTIVAL HAEMORRHAGE [None]
